FAERS Safety Report 9505678 (Version 1)
Quarter: 2013Q1

REPORT INFORMATION
  Report Type: Spontaneous
  Country: US (occurrence: None)
  Receive Date: 20130220
  Receipt Date: 20130220
  Transmission Date: 20140127
  Serious: No
  Sender: FDA-Public Use
  Company Number: 1000040046

PATIENT
  Age: 60 Year
  Sex: Male

DRUGS (6)
  1. VIIBRYD [Suspect]
     Indication: DEPRESSION
     Route: 048
     Dates: start: 20121023, end: 20121029
  2. PRAVASTATIN (PRAVASTATIN) (PRAVASTATIN) [Concomitant]
  3. LISINOPRIL (LISINOPRIL) (LISINOPRIL) [Concomitant]
  4. LANTUS (INSULIN GLARGINE) (INSULIN GLARGINE) [Concomitant]
  5. NOVOLOG (INSULIN ASPART) (INSULIN ASPART) [Concomitant]
  6. MS CONTIN (MORPHINE SULFATE) (MORPHINE SULFATE) [Concomitant]

REACTIONS (3)
  - Ejaculation failure [None]
  - Abdominal discomfort [None]
  - Diarrhoea [None]
